FAERS Safety Report 7454392-X (Version None)
Quarter: 2011Q2

REPORT INFORMATION
  Report Type: 
  Country: None (occurrence: None)
  Receive Date: 20110503
  Receipt Date: 20110405
  Transmission Date: 20111010
  Serious: Yes (Life-Threatening, Hospitalization, Other)
  Sender: FDA-Public Use
  Company Number: US-BAYER-201038287NA

PATIENT
  Age: 47 Year
  Sex: Female
  Weight: 77 kg

DRUGS (8)
  1. FERROUS SULFATE TAB [Concomitant]
  2. PROTONIX [Concomitant]
  3. NORCO [Concomitant]
  4. YAZ [Suspect]
     Indication: PRODUCT USED FOR UNKNOWN INDICATION
     Dosage: UNK
     Route: 048
     Dates: start: 20060601, end: 20090801
  5. YASMIN [Suspect]
     Indication: PRODUCT USED FOR UNKNOWN INDICATION
     Dosage: UNK
     Route: 048
     Dates: start: 20060701, end: 20060801
  6. AMBIEN [Concomitant]
  7. TRAMADOL [Concomitant]
  8. MECLIZINE [Concomitant]

REACTIONS (3)
  - PORTAL VEIN THROMBOSIS [None]
  - PAIN [None]
  - THROMBOSIS [None]
